FAERS Safety Report 15401906 (Version 1)
Quarter: 2018Q3

REPORT INFORMATION
  Report Type: Spontaneous
  Country: US (occurrence: US)
  Receive Date: 20180914
  Receipt Date: 20180914
  Transmission Date: 20181010
  Serious: Yes (Life-Threatening, Hospitalization, Disabling, Other)
  Sender: FDA-Public Use
  Company Number: None

PATIENT
  Age: 68 Year
  Sex: Male
  Weight: 56.25 kg

DRUGS (3)
  1. BARACLUDE [Suspect]
     Active Substance: ENTECAVIR
     Indication: CHRONIC HEPATITIS B
  2. BARACLUDE [Suspect]
     Active Substance: ENTECAVIR
     Indication: HEPATITIS B E ANTIGEN NEGATIVE
  3. ENTECAVIR. [Concomitant]
     Active Substance: ENTECAVIR

REACTIONS (10)
  - Hepatitis B [None]
  - Liver transplant [None]
  - Intentional dose omission [None]
  - Hepatitis B e antigen positive [None]
  - Hepatitis B e antibody positive [None]
  - Hepatic encephalopathy [None]
  - Acute hepatic failure [None]
  - Hepatitis B e antigen negative [None]
  - Disease recurrence [None]
  - Hepatitis B e antibody negative [None]

NARRATIVE: CASE EVENT DATE: 20180721
